FAERS Safety Report 25329683 (Version 4)
Quarter: 2025Q2

REPORT INFORMATION
  Report Type: Report from Study
  Country: CA (occurrence: CA)
  Receive Date: 20250519
  Receipt Date: 20250618
  Transmission Date: 20250717
  Serious: Yes (Other)
  Sender: TAKEDA
  Company Number: CA-TAKEDA-2024TUS047568

PATIENT
  Age: 62 Year
  Sex: Female

DRUGS (6)
  1. VEDOLIZUMAB [Suspect]
     Active Substance: VEDOLIZUMAB
     Indication: Colitis ulcerative
  2. VEDOLIZUMAB [Suspect]
     Active Substance: VEDOLIZUMAB
  3. VEDOLIZUMAB [Suspect]
     Active Substance: VEDOLIZUMAB
  4. VEDOLIZUMAB [Suspect]
     Active Substance: VEDOLIZUMAB
     Dosage: 300 MILLIGRAM, Q4WEEKS
     Dates: start: 20250529, end: 20250529
  5. PREDNISONE [Concomitant]
     Active Substance: PREDNISONE
  6. MESALAMINE [Concomitant]
     Active Substance: MESALAMINE
     Dosage: 4.8 GRAM, QD
     Dates: start: 20230227

REACTIONS (11)
  - Colitis ulcerative [Unknown]
  - Colitis [Unknown]
  - Haematochezia [Unknown]
  - Anal haemorrhage [Unknown]
  - Alopecia [Unknown]
  - Mouth ulceration [Unknown]
  - Rectal tenesmus [Unknown]
  - Proctalgia [Unknown]
  - Mucous stools [Unknown]
  - Treatment failure [Unknown]
  - Off label use [Unknown]

NARRATIVE: CASE EVENT DATE: 20250521
